FAERS Safety Report 6885952-2 (Version None)
Quarter: 2010Q3

REPORT INFORMATION
  Report Type: 
  Country: None (occurrence: None)
  Receive Date: 20100729
  Receipt Date: 20090217
  Transmission Date: 20110219
  Serious: No
  Sender: FDA-Public Use
  Company Number: US-PFIZER INC-2009171768

PATIENT
  Sex: Female
  Weight: 77.11 kg

DRUGS (7)
  1. CELEBREX [Suspect]
     Indication: ARTHRITIS
     Dates: start: 20090212, end: 20090212
  2. VIVELLE [Concomitant]
     Indication: MENOPAUSE
     Dosage: UNK
     Route: 062
  3. HYDROCHLOROTHIAZIDE [Concomitant]
     Indication: HYPERTENSION
     Dosage: UNK
  4. HYDROCHLOROTHIAZIDE [Concomitant]
     Indication: FLUID RETENTION
  5. GABAPENTIN [Concomitant]
     Dosage: UNK
  6. LUNESTA [Concomitant]
     Indication: SLEEP DISORDER
     Dosage: UNK
  7. LEVOTHYROXINE [Concomitant]
     Dosage: UNK

REACTIONS (2)
  - ABDOMINAL PAIN UPPER [None]
  - VOMITING [None]
